FAERS Safety Report 18552807 (Version 1)
Quarter: 2020Q4

REPORT INFORMATION
  Report Type: Report from Study
  Country: None (occurrence: US)
  Receive Date: 20201127
  Receipt Date: 20201127
  Transmission Date: 20210114
  Serious: No
  Sender: FDA-Public Use
  Company Number: US-BIOVITRUM-2020US2717

PATIENT
  Sex: Female

DRUGS (2)
  1. KINERET [Suspect]
     Active Substance: ANAKINRA
     Indication: RHEUMATOID ARTHRITIS
     Dosage: /0.67 ML
     Route: 058
     Dates: start: 20200505
  2. KINERET [Suspect]
     Active Substance: ANAKINRA
     Route: 058
     Dates: start: 20190502

REACTIONS (8)
  - Injection site pruritus [Unknown]
  - Product dose omission issue [Unknown]
  - Gastroenteritis viral [Unknown]
  - Headache [Unknown]
  - Injection site urticaria [Unknown]
  - Nausea [Unknown]
  - Syringe issue [Unknown]
  - Injection site bruising [Unknown]
